FAERS Safety Report 13133685 (Version 1)
Quarter: 2017Q1

REPORT INFORMATION
  Report Type: Spontaneous
  Country: US (occurrence: US)
  Receive Date: 20170119
  Receipt Date: 20170119
  Transmission Date: 20170428
  Serious: Yes (Hospitalization)
  Sender: FDA-Public Use
  Company Number: None

PATIENT
  Age: 63 Year
  Sex: Male

DRUGS (1)
  1. HUMIRA [Suspect]
     Active Substance: ADALIMUMAB
     Indication: ANKYLOSING SPONDYLITIS
     Dosage: 40MG/0.8ML EVERY OTHER WEEK SUBCUTANEOUSLY
     Route: 058
     Dates: start: 20150901

REACTIONS (1)
  - Fall [None]

NARRATIVE: CASE EVENT DATE: 20161217
